FAERS Safety Report 9349759 (Version 1)
Quarter: 2013Q2

REPORT INFORMATION
  Report Type: Report from Study
  Country: DE (occurrence: DE)
  Receive Date: 20130614
  Receipt Date: 20130614
  Transmission Date: 20140414
  Serious: Yes (Other)
  Sender: FDA-Public Use
  Company Number: DE-BAYER-2013-070965

PATIENT
  Age: 65 Year
  Sex: Male

DRUGS (3)
  1. ASPIRIN 100 MG [Suspect]
     Indication: CARDIOVASCULAR EVENT PROPHYLAXIS
     Dosage: DAILY DOSE 100 MG
     Route: 048
  2. ACETYLSALICYLIC ACID [Suspect]
     Indication: CARDIOVASCULAR EVENT PROPHYLAXIS
     Dosage: DAILY DOSE 300 MG
     Route: 048
  3. ACETAZOLAMIDE [Concomitant]

REACTIONS (1)
  - Drug resistance [None]
